FAERS Safety Report 10450456 (Version 1)
Quarter: 2014Q3

REPORT INFORMATION
  Report Type: Spontaneous
  Country: US (occurrence: None)
  Receive Date: 20140911
  Receipt Date: 20140911
  Transmission Date: 20150326
  Serious: Yes (Hospitalization)
  Sender: FDA-Public Use
  Company Number: None

PATIENT
  Age: 62 Year
  Sex: Female
  Weight: 54.3 kg

DRUGS (10)
  1. FOLIC ACID. [Concomitant]
     Active Substance: FOLIC ACID
  2. MULTIVITAMIN WITH MINERALS [Concomitant]
     Active Substance: MINERALS\VITAMINS
  3. ASCORBIC ACIDS (VIT C) [Concomitant]
  4. PYRIDOXINE [Concomitant]
     Active Substance: PYRIDOXINE
  5. RIBAVIRIN. [Suspect]
     Active Substance: RIBAVIRIN
     Indication: HEPATITIS C
     Route: 048
     Dates: start: 20140116
  6. ALBUTEROL. [Concomitant]
     Active Substance: ALBUTEROL
  7. RIFAXIMIN [Concomitant]
     Active Substance: RIFAXIMIN
  8. SPIRONOLACTONE. [Concomitant]
     Active Substance: SPIRONOLACTONE
  9. SOFOSBUVIR [Suspect]
     Active Substance: SOFOSBUVIR
     Indication: HEPATITIS C
     Route: 048
     Dates: start: 20140116
  10. POLYCARBOPHIL [Concomitant]
     Active Substance: POLYCARBOPHIL

REACTIONS (8)
  - Ammonia increased [None]
  - Acute respiratory failure [None]
  - Peritonitis bacterial [None]
  - Hypoxia [None]
  - Escherichia infection [None]
  - Hepatic encephalopathy [None]
  - Urinary tract infection [None]
  - Iron overload [None]

NARRATIVE: CASE EVENT DATE: 20140903
